FAERS Safety Report 8811478 (Version 6)
Quarter: 2013Q3

REPORT INFORMATION
  Report Type: Report from Study
  Country: JP (occurrence: JP)
  Receive Date: 20120927
  Receipt Date: 20130724
  Transmission Date: 20140515
  Serious: Yes (Life-Threatening, Other)
  Sender: FDA-Public Use
  Company Number: JP-009507513-2012SP034175

PATIENT
  Age: 68 Year
  Sex: Male
  Weight: 66 kg

DRUGS (14)
  1. PEGINTRON [Suspect]
     Indication: CHRONIC HEPATITIS C
     Dosage: 50 MICROGRAM, QW
     Route: 058
     Dates: start: 20120316, end: 20120322
  2. PEGINTRON [Suspect]
     Dosage: 0.38 MICROGRAM PER KILOGRAM, QW
     Route: 058
     Dates: start: 20120323, end: 20120403
  3. PEGINTRON [Suspect]
     Dosage: 0.61 MICROGRAM PER KILOGRAM, QW
     Route: 058
     Dates: start: 20120404, end: 20120417
  4. PEGINTRON [Suspect]
     Dosage: 0.77 MICROGRAM PER KILOGRAM, QW
     Route: 058
     Dates: start: 20120418, end: 20120424
  5. PEGINTRON [Suspect]
     Dosage: 0.38 MICROGRAM PER KILOGRAM, QW
     Route: 058
     Dates: start: 20120425, end: 20120501
  6. PEGINTRON [Suspect]
     Dosage: 0.61 MICROGRAM PER KILOGRAM, QW
     Route: 058
     Dates: start: 20120502, end: 20120529
  7. PEGINTRON [Suspect]
     Dosage: 0.38 MICROGRAM PER KILOGRAM, QW
     Route: 058
     Dates: start: 20120530, end: 20120530
  8. REBETOL CAPSULES 200MG [Suspect]
     Indication: CHRONIC HEPATITIS C
     Dosage: 800 MG, QD
     Route: 048
     Dates: start: 20120316, end: 20120424
  9. REBETOL CAPSULES 200MG [Suspect]
     Dosage: 600 MG, QD
     Route: 048
     Dates: start: 20120425, end: 20120522
  10. REBETOL CAPSULES 200MG [Suspect]
     Dosage: 200 MG, QD
     Route: 048
     Dates: start: 20120523, end: 20120529
  11. REBETOL CAPSULES 200MG [Suspect]
     Dosage: 100 MG, QD, 200 MG EVERY 2 DAYS
     Route: 048
     Dates: start: 20120530, end: 20120603
  12. TELAVIC [Suspect]
     Indication: CHRONIC HEPATITIS C
     Dosage: 2250 MG, QD
     Route: 048
     Dates: start: 20120316, end: 20120529
  13. TELAVIC [Suspect]
     Dosage: 1500 MG, QD
     Route: 048
     Dates: start: 20120530, end: 20120604
  14. NEO-MINOPHAGEN C [Concomitant]
     Indication: CHRONIC HEPATITIS C
     Dosage: 60 ML, QD
     Route: 042
     Dates: end: 20120425

REACTIONS (2)
  - Acute myocardial infarction [Recovered/Resolved with Sequelae]
  - Anaemia [Recovered/Resolved]
